FAERS Safety Report 15863958 (Version 2)
Quarter: 2019Q1

REPORT INFORMATION
  Report Type: Spontaneous
  Country: US (occurrence: US)
  Receive Date: 20190124
  Receipt Date: 20190207
  Transmission Date: 20190417
  Serious: No
  Sender: FDA-Public Use
  Company Number: US-BIOGEN-2019BI00686643

PATIENT
  Age: 16 Year
  Sex: Female

DRUGS (1)
  1. PLEGRIDY [Suspect]
     Active Substance: PEGINTERFERON BETA-1A
     Indication: MULTIPLE SCLEROSIS
     Route: 058
     Dates: start: 20190106

REACTIONS (4)
  - Injection site erythema [Unknown]
  - Pain in extremity [Unknown]
  - Off label use [Unknown]
  - Injection site warmth [Unknown]

NARRATIVE: CASE EVENT DATE: 20190106
